FAERS Safety Report 9858036 (Version 3)
Quarter: 2014Q3

REPORT INFORMATION
  Report Type: Report from Study
  Country: DE (occurrence: DE)
  Receive Date: 20140131
  Receipt Date: 20140811
  Transmission Date: 20150326
  Serious: Yes (Hospitalization)
  Sender: FDA-Public Use
  Company Number: DE-ROCHE-1341359

PATIENT
  Age: 78 Year
  Sex: Female
  Weight: 60.8 kg

DRUGS (14)
  1. BEVACIZUMAB [Suspect]
     Active Substance: BEVACIZUMAB
     Route: 042
     Dates: start: 20131227, end: 20131227
  2. CARBOPLATIN. [Suspect]
     Active Substance: CARBOPLATIN
     Route: 042
     Dates: start: 20140128, end: 20140128
  3. PACLITAXEL. [Suspect]
     Active Substance: PACLITAXEL
     Route: 042
     Dates: start: 20131205, end: 20131205
  4. PACLITAXEL. [Suspect]
     Active Substance: PACLITAXEL
     Route: 042
     Dates: start: 20140218, end: 20140218
  5. CARBOPLATIN. [Suspect]
     Active Substance: CARBOPLATIN
     Route: 042
     Dates: start: 20131205, end: 20131205
  6. PACLITAXEL. [Suspect]
     Active Substance: PACLITAXEL
     Indication: OVARIAN CANCER
     Route: 042
     Dates: start: 20131024, end: 20131024
  7. PACLITAXEL. [Suspect]
     Active Substance: PACLITAXEL
     Route: 042
     Dates: start: 20131227, end: 20131227
  8. PACLITAXEL. [Suspect]
     Active Substance: PACLITAXEL
     Route: 042
     Dates: start: 20140128, end: 20140128
  9. BEVACIZUMAB [Suspect]
     Active Substance: BEVACIZUMAB
     Indication: OVARIAN CANCER
     Route: 042
     Dates: start: 20131114, end: 20131114
  10. CARBOPLATIN. [Suspect]
     Active Substance: CARBOPLATIN
     Route: 042
     Dates: start: 20131227, end: 20131227
  11. CARBOPLATIN. [Suspect]
     Active Substance: CARBOPLATIN
     Route: 042
     Dates: start: 20140218, end: 20140218
  12. PACLITAXEL. [Suspect]
     Active Substance: PACLITAXEL
     Route: 042
     Dates: start: 20131114, end: 20131114
  13. CARBOPLATIN. [Suspect]
     Active Substance: CARBOPLATIN
     Route: 042
     Dates: start: 20131114, end: 20131114
  14. CARBOPLATIN. [Suspect]
     Active Substance: CARBOPLATIN
     Indication: OVARIAN CANCER
     Route: 042
     Dates: start: 20131024, end: 20131024

REACTIONS (3)
  - Duodenitis [Recovered/Resolved]
  - Gastritis [Recovered/Resolved]
  - Gastrointestinal haemorrhage [Recovered/Resolved]

NARRATIVE: CASE EVENT DATE: 20140116
